FAERS Safety Report 5875699-3 (Version None)
Quarter: 2008Q3

REPORT INFORMATION
  Report Type: 
  Country: None (occurrence: None)
  Receive Date: 20080905
  Receipt Date: 20080828
  Transmission Date: 20090109
  Serious: Yes (Life-Threatening)
  Sender: FDA-Public Use
  Company Number: 08H-163-0314823-00

PATIENT
  Age: 49 Year
  Sex: Male
  Weight: 68.0396 kg

DRUGS (2)
  1. MORPHINE [Suspect]
     Dosage: 100ML/HR, CONTINUOUS, INTRAVENOUS
     Route: 042
     Dates: start: 20080828, end: 20080828
  2. SODIUM CHLORIDE [Concomitant]

REACTIONS (4)
  - DYSPNOEA [None]
  - INAPPROPRIATE DEVICE PROGRAMMING [None]
  - INCORRECT DRUG ADMINISTRATION RATE [None]
  - UNRESPONSIVE TO STIMULI [None]
